FAERS Safety Report 24343414 (Version 1)
Quarter: 2024Q3

REPORT INFORMATION
  Report Type: Spontaneous
  Country: FR (occurrence: FR)
  Receive Date: 20240920
  Receipt Date: 20240920
  Transmission Date: 20241017
  Serious: Yes (Hospitalization)
  Sender: FRESENIUS KABI
  Company Number: None

PATIENT
  Age: 69 Year
  Sex: Male
  Weight: 71 kg

DRUGS (10)
  1. TYENNE [Suspect]
     Active Substance: TOCILIZUMAB-AAZG
     Indication: VEXAS syndrome
     Dosage: 1 BOTTLE OF 200 MG +1 BOTTLE OF 400 MG
     Route: 042
     Dates: start: 20240828, end: 20240828
  2. CALCIDOSE [CHOLECALCIFEROL CONCENTRATE, POWDER FORM, CALCIUM CARBONATE [Concomitant]
     Indication: Product used for unknown indication
  3. SPECIAFOLDINE [FOLIC ACID] [Concomitant]
     Indication: Product used for unknown indication
  4. RUXOLITINIB [Concomitant]
     Active Substance: RUXOLITINIB
     Indication: Product used for unknown indication
  5. METFORMIN [METFORMIN] [Concomitant]
     Indication: Product used for unknown indication
  6. CORTANCYL [PREDNISONE] [Concomitant]
     Indication: Product used for unknown indication
  7. ATOVAQUONE [ATOVAQUONE] [Concomitant]
     Indication: Product used for unknown indication
  8. ACTONEL [RISEDRONATE MONOSODIUM HEMIPENTAHYDRATE] [Concomitant]
     Indication: Product used for unknown indication
  9. APIXABAN [APIXABAN] [Concomitant]
     Indication: Product used for unknown indication
  10. NOVONORM [REPAGLINIDE] [Concomitant]
     Indication: Product used for unknown indication

REACTIONS (4)
  - Hypotension [Recovered/Resolved]
  - Vertigo [Recovered/Resolved]
  - Hypersensitivity [Recovered/Resolved]
  - Chills [Recovered/Resolved]

NARRATIVE: CASE EVENT DATE: 20240828
